FAERS Safety Report 8453771-1 (Version None)
Quarter: 2012Q2

REPORT INFORMATION
  Report Type: 
  Country: None (occurrence: None)
  Receive Date: 20120620
  Receipt Date: 20120614
  Transmission Date: 20120825
  Serious: Yes (Other)
  Sender: FDA-Public Use
  Company Number: US-PFIZER INC-2012143985

PATIENT
  Sex: Female
  Weight: 53.061 kg

DRUGS (5)
  1. PRISTIQ [Suspect]
     Indication: DEPRESSION
  2. PRISTIQ [Suspect]
     Indication: ANXIETY
     Dosage: 50 MG, 1X/DAY
     Route: 048
     Dates: start: 20120501
  3. LEVOXYL [Concomitant]
     Indication: HYPOTHYROIDISM
     Dosage: UNK
  4. TOPAMAX [Concomitant]
     Dosage: UNK
  5. KLONOPIN [Concomitant]
     Dosage: UNK

REACTIONS (11)
  - DEPRESSION [None]
  - ABNORMAL DREAMS [None]
  - FEELING ABNORMAL [None]
  - MUSCLE SPASMS [None]
  - FATIGUE [None]
  - SOMNOLENCE [None]
  - MALAISE [None]
  - ILL-DEFINED DISORDER [None]
  - SUICIDAL IDEATION [None]
  - DYSPNOEA [None]
  - DRUG INEFFECTIVE [None]
